FAERS Safety Report 25483527 (Version 1)
Quarter: 2025Q2

REPORT INFORMATION
  Report Type: Spontaneous
  Country: DE (occurrence: DE)
  Receive Date: 20250626
  Receipt Date: 20250626
  Transmission Date: 20250716
  Serious: Yes (Other)
  Sender: MERCK SHARP & DOHME LLC
  Company Number: DE-009507513-1807DEU012698

PATIENT
  Sex: Male

DRUGS (1)
  1. METFORMIN\SITAGLIPTIN [Suspect]
     Active Substance: METFORMIN\SITAGLIPTIN
     Indication: Diabetes mellitus
     Route: 048
     Dates: start: 201805

REACTIONS (28)
  - Myocardial infarction [Unknown]
  - Renal failure [Unknown]
  - Liver injury [Unknown]
  - Dysgeusia [Unknown]
  - Seasonal allergy [Unknown]
  - Fatigue [Unknown]
  - Renal injury [Unknown]
  - Diarrhoea [Unknown]
  - Myalgia [Unknown]
  - Cardiovascular disorder [Unknown]
  - Cholelithiasis [Unknown]
  - Biliary colic [Unknown]
  - Cholecystectomy [Unknown]
  - Hyperchlorhydria [Unknown]
  - Depression [Unknown]
  - Vomiting [Unknown]
  - Blood creatine increased [Unknown]
  - Drug ineffective [Unknown]
  - Therapeutic product effect incomplete [Unknown]
  - Gait disturbance [Unknown]
  - Malaise [Not Recovered/Not Resolved]
  - Adverse drug reaction [Unknown]
  - Myalgia [Unknown]
  - Cardiovascular disorder [Unknown]
  - Weight decreased [Unknown]
  - Liver disorder [Unknown]
  - Sleep disorder [Unknown]
  - Muscle spasms [Unknown]

NARRATIVE: CASE EVENT DATE: 20180101
